FAERS Safety Report 9821278 (Version 1)
Quarter: 2014Q1

REPORT INFORMATION
  Report Type: Spontaneous
  Country: US (occurrence: None)
  Receive Date: 20140115
  Receipt Date: 20140115
  Transmission Date: 20141002
  Serious: Yes (Hospitalization, Other)
  Sender: FDA-Public Use
  Company Number: None

PATIENT
  Age: 66 Year
  Sex: Female
  Weight: 56.7 kg

DRUGS (10)
  1. ACTONEL [Suspect]
     Indication: OSTEOPENIA
     Dosage: 1 TABLET
     Route: 048
  2. ACTONEL [Suspect]
     Indication: OSTEOPOROSIS
     Dosage: 1 TABLET
     Route: 048
  3. CARVEDILOL [Concomitant]
  4. PREMPRO [Concomitant]
  5. VAGIFEM [Concomitant]
  6. VESICARE [Concomitant]
  7. CRESTOR [Concomitant]
  8. ASA [Concomitant]
  9. CALCIUM [Concomitant]
  10. VIT D3 [Concomitant]

REACTIONS (2)
  - Femur fracture [None]
  - Pain in extremity [None]
